FAERS Safety Report 18607193 (Version 4)
Quarter: 2021Q1

REPORT INFORMATION
  Report Type: Spontaneous
  Country: US (occurrence: US)
  Receive Date: 20201211
  Receipt Date: 20210301
  Transmission Date: 20210419
  Serious: No
  Sender: FDA-Public Use
  Company Number: US-PFIZER INC-2020488532

PATIENT
  Age: 66 Year
  Sex: Male

DRUGS (3)
  1. INLYTA [Suspect]
     Active Substance: AXITINIB
     Dosage: 5 MG, 2X/DAY
     Route: 048
     Dates: start: 20201203
  2. INLYTA [Suspect]
     Active Substance: AXITINIB
     Dosage: 2.5 DF (2 AND A HALF TABLETS)
  3. INLYTA [Suspect]
     Active Substance: AXITINIB
     Dosage: 5 MG
     Dates: start: 20201202

REACTIONS (9)
  - Wrong technique in product usage process [Unknown]
  - Sinusitis [Unknown]
  - Hypertension [Unknown]
  - Prescribed overdose [Unknown]
  - Gastrooesophageal reflux disease [Recovered/Resolved]
  - Blood glucose increased [Unknown]
  - Palmar-plantar erythrodysaesthesia syndrome [Unknown]
  - Diarrhoea [Unknown]
  - Headache [Unknown]

NARRATIVE: CASE EVENT DATE: 202012
